FAERS Safety Report 5714789-2 (Version None)
Quarter: 2008Q2

REPORT INFORMATION
  Report Type: 
  Country: None (occurrence: None)
  Receive Date: 20080423
  Receipt Date: 20080421
  Transmission Date: 20081010
  Serious: Yes (Death)
  Sender: FDA-Public Use
  Company Number: FR-BRISTOL-MYERS SQUIBB COMPANY-14158398

PATIENT
  Age: 84 Year
  Sex: Female

DRUGS (4)
  1. WARFARIN SODIUM [Suspect]
  2. ECONAZOLE NITRATE [Interacting]
     Dosage: DOSAGE FORM = 1% LOTION
  3. AMOXICILLIN + CLAVULANATE POTASSIUM [Concomitant]
  4. OFLOXACIN [Concomitant]

REACTIONS (3)
  - DRUG INTERACTION [None]
  - INTERNATIONAL NORMALISED RATIO INCREASED [None]
  - PNEUMONIA [None]
